FAERS Safety Report 7152905-9 (Version None)
Quarter: 2010Q4

REPORT INFORMATION
  Report Type: 
  Country: None (occurrence: None)
  Receive Date: 20101213
  Receipt Date: 20101210
  Transmission Date: 20110411
  Serious: Yes (Life-Threatening)
  Sender: FDA-Public Use
  Company Number: AU-ABBOTT-10P-008-0690551-00

PATIENT
  Sex: Female
  Weight: 96 kg

DRUGS (1)
  1. REDUCTIL 15MG [Suspect]
     Indication: PRODUCT USED FOR UNKNOWN INDICATION

REACTIONS (2)
  - CIRCULATORY COLLAPSE [None]
  - ELECTROCARDIOGRAM QT PROLONGED [None]
